FAERS Safety Report 8052642-2 (Version None)
Quarter: 2012Q1

REPORT INFORMATION
  Report Type: 
  Country: None (occurrence: None)
  Receive Date: 20120118
  Receipt Date: 20120105
  Transmission Date: 20120608
  Serious: Yes (Other)
  Sender: FDA-Public Use
  Company Number: US-JNJFOC-20111209111

PATIENT
  Age: 30 Year
  Sex: Female

DRUGS (8)
  1. REYATAZ [Suspect]
     Indication: HIV INFECTION
     Route: 048
     Dates: start: 20110621
  2. COCAINE [Suspect]
     Indication: DRUG ABUSE
     Route: 065
  3. TRUVADA [Suspect]
     Indication: HIV INFECTION
     Route: 048
     Dates: start: 20110621
  4. ZIAGEN [Suspect]
     Indication: HIV INFECTION
     Route: 048
     Dates: end: 20110621
  5. BACTRIM [Suspect]
     Indication: PRODUCT USED FOR UNKNOWN INDICATION
     Route: 065
  6. INTELENCE [Suspect]
     Indication: HIV INFECTION
     Route: 048
     Dates: end: 20110621
  7. NORVIR [Suspect]
     Indication: HIV INFECTION
     Route: 048
     Dates: start: 20110621
  8. EPIVIR [Suspect]
     Indication: HIV INFECTION
     Route: 048
     Dates: end: 20110621

REACTIONS (4)
  - ABORTION SPONTANEOUS [None]
  - MATERNAL EXPOSURE DURING PREGNANCY [None]
  - PYREXIA [None]
  - RASH [None]
